FAERS Safety Report 19166162 (Version 2)
Quarter: 2021Q2

REPORT INFORMATION
  Report Type: Spontaneous
  Country: CO (occurrence: CO)
  Receive Date: 20210422
  Receipt Date: 20210530
  Transmission Date: 20210717
  Serious: Yes (Other)
  Sender: FDA-Public Use
  Company Number: CO-AMGEN-COLSP2021060064

PATIENT
  Age: 62 Year
  Sex: Male

DRUGS (1)
  1. ENBREL [Suspect]
     Active Substance: ETANERCEPT
     Indication: RHEUMATOID ARTHRITIS
     Dosage: 50 MILLIGRAM
     Route: 058
     Dates: start: 2018, end: 202012

REACTIONS (4)
  - Liver disorder [Unknown]
  - General physical health deterioration [Unknown]
  - Inflammation [Unknown]
  - Prostate cancer [Unknown]

NARRATIVE: CASE EVENT DATE: 202012
